FAERS Safety Report 11466054 (Version 1)
Quarter: 2015Q3

REPORT INFORMATION
  Report Type: Spontaneous
  Country: US (occurrence: US)
  Receive Date: 20150907
  Receipt Date: 20150907
  Transmission Date: 20151125
  Serious: Yes (Other)
  Sender: FDA-Public Use
  Company Number: US-TAKEDA-2014TUS010861

PATIENT

DRUGS (8)
  1. PRANDIN                            /01393601/ [Concomitant]
     Dosage: UNK
     Dates: start: 2005
  2. ACTOS [Suspect]
     Active Substance: PIOGLITAZONE HYDROCHLORIDE
     Indication: TYPE 2 DIABETES MELLITUS
     Dosage: 30MG, 15MG, UNK
     Route: 048
     Dates: start: 200611, end: 20120907
  3. NOVOLOG [Concomitant]
     Active Substance: INSULIN ASPART
     Indication: DIABETES MELLITUS
     Dosage: 2 IU BEFORE BREAKFAST + LUNCH, 4 IU BEFORE DINNER, UNK
     Dates: start: 2006
  4. ACTOS [Suspect]
     Active Substance: PIOGLITAZONE HYDROCHLORIDE
     Dosage: 15MG, 30MG, UNK
     Route: 048
     Dates: start: 20121008, end: 20131029
  5. HYDROCHLOROTHIAZIDE. [Concomitant]
     Active Substance: HYDROCHLOROTHIAZIDE
     Indication: DIABETES MELLITUS
     Dosage: 12.5 MG, UNK
     Dates: start: 2006
  6. LANTUS [Concomitant]
     Active Substance: INSULIN GLARGINE
     Dosage: 10 IUS AT BEDTIME, UNK
     Dates: start: 2006
  7. MICARDIS [Concomitant]
     Active Substance: TELMISARTAN
     Indication: DIABETES MELLITUS
     Dosage: 20 MG, UNK
     Dates: start: 2005
  8. METFORMIN [Concomitant]
     Active Substance: METFORMIN HYDROCHLORIDE
     Dosage: UNK
     Dates: start: 2005

REACTIONS (1)
  - Bladder cancer [Unknown]

NARRATIVE: CASE EVENT DATE: 20131029
